FAERS Safety Report 8362483-4 (Version None)
Quarter: 2012Q2

REPORT INFORMATION
  Report Type: 
  Country: None (occurrence: None)
  Receive Date: 20120514
  Receipt Date: 20120514
  Transmission Date: 20120825
  Serious: No
  Sender: FDA-Public Use
  Company Number: None

PATIENT
  Age: 50 Year
  Sex: Male
  Weight: 74.8435 kg

DRUGS (5)
  1. ASPIRIN [Concomitant]
  2. LISINOPRIL [Suspect]
     Indication: PROPHYLAXIS
     Dosage: 2.5 MG DAILY PO
     Route: 048
     Dates: start: 20110209, end: 20120401
  3. PRAVASTATIN [Concomitant]
  4. LANTUS [Concomitant]
  5. NOVOLOG [Concomitant]

REACTIONS (5)
  - EXERCISE TOLERANCE DECREASED [None]
  - DYSSTASIA [None]
  - MYALGIA [None]
  - PAIN [None]
  - DRUG INTERACTION [None]
